FAERS Safety Report 9362113 (Version 1)
Quarter: 2013Q2

REPORT INFORMATION
  Report Type: Spontaneous
  Country: BR (occurrence: BR)
  Receive Date: 20130621
  Receipt Date: 20130621
  Transmission Date: 20140414
  Serious: Yes (Other)
  Sender: FDA-Public Use
  Company Number: BR-ASTRAZENECA-2013SE46697

PATIENT
  Age: 67 Year
  Sex: Female
  Weight: 56 kg

DRUGS (6)
  1. ATACAND [Suspect]
     Route: 048
     Dates: start: 2006
  2. CRESTOR [Suspect]
     Route: 048
     Dates: start: 2006
  3. CLOPIDOGREL [Concomitant]
     Dates: start: 2006
  4. MONOCORDIL [Concomitant]
     Dates: start: 2006
  5. ASA [Concomitant]
     Dates: start: 2006
  6. CARVEDILOL [Concomitant]
     Dates: start: 2006

REACTIONS (1)
  - Venous occlusion [Recovered/Resolved]
